FAERS Safety Report 8547678-9 (Version None)
Quarter: 2012Q3

REPORT INFORMATION
  Report Type: 
  Country: None (occurrence: None)
  Receive Date: 20120727
  Receipt Date: 20111118
  Transmission Date: 20120928
  Serious: Yes (Other)
  Sender: FDA-Public Use
  Company Number: US-ASTRAZENECA-2011SE70540

PATIENT
  Sex: Male

DRUGS (2)
  1. SEROQUEL XR [Suspect]
     Route: 048
  2. HALOPERIDOL DECANOATE [Concomitant]
     Route: 065

REACTIONS (1)
  - ATRIOVENTRICULAR BLOCK FIRST DEGREE [None]
